FAERS Safety Report 5475443-8 (Version None)
Quarter: 2007Q3

REPORT INFORMATION
  Report Type: 
  Country: None (occurrence: None)
  Receive Date: 20070919
  Receipt Date: 20070806
  Transmission Date: 20080115
  Serious: No
  Sender: FDA-Public Use
  Company Number: 2007RL000351

PATIENT
  Age: 68 Year
  Sex: Male
  Weight: 76.6579 kg

DRUGS (3)
  1. OMACOR [Suspect]
     Indication: BLOOD TRIGLYCERIDES INCREASED
     Dosage: 1 GM; TID; PO
     Route: 048
     Dates: start: 20070601
  2. URSODIOL [Concomitant]
  3. VITAMINS [Concomitant]

REACTIONS (1)
  - WAIST CIRCUMFERENCE INCREASED [None]
